FAERS Safety Report 6506615-9 (Version None)
Quarter: 2009Q4

REPORT INFORMATION
  Report Type: 
  Country: None (occurrence: None)
  Receive Date: 20091216
  Receipt Date: 20091208
  Transmission Date: 20100525
  Serious: Yes (Death)
  Sender: FDA-Public Use
  Company Number: 1-20962676

PATIENT
  Age: 49 Year
  Sex: Female

DRUGS (1)
  1. PHENTERMINE HCL [Suspect]
     Indication: WEIGHT CONTROL
     Dosage: ORAL
     Route: 048

REACTIONS (3)
  - CARDIO-RESPIRATORY ARREST [None]
  - SUDDEN CARDIAC DEATH [None]
  - VENTRICULAR TACHYCARDIA [None]
